FAERS Safety Report 7673997-4 (Version None)
Quarter: 2011Q3

REPORT INFORMATION
  Report Type: 
  Country: None (occurrence: None)
  Receive Date: 20110810
  Receipt Date: 20110303
  Transmission Date: 20111222
  Serious: No
  Sender: FDA-Public Use
  Company Number: US-GLAXOSMITHKLINE-A0917210A

PATIENT
  Sex: Male

DRUGS (2)
  1. PAXIL CR [Suspect]
     Indication: MOOD SWINGS
     Dosage: 12.5MG PER DAY
     Route: 048
  2. DIOVAN [Concomitant]

REACTIONS (1)
  - MOOD SWINGS [None]
